FAERS Safety Report 9868169 (Version 2)
Quarter: 2014Q2

REPORT INFORMATION
  Report Type: Spontaneous
  Country: GB (occurrence: GB)
  Receive Date: 20140204
  Receipt Date: 20140501
  Transmission Date: 20141212
  Serious: Yes (Other)
  Sender: FDA-Public Use
  Company Number: PHHY2014GB009696

PATIENT
  Age: 75 Year
  Sex: Male
  Weight: 72 kg

DRUGS (4)
  1. RAMIPRIL [Suspect]
     Dosage: 2.5 MG, QD
     Dates: end: 20131226
  2. RAMIPRIL [Suspect]
     Dosage: 5 MG, QD
     Dates: start: 20131227
  3. SIMVASTATIN [Concomitant]
     Dates: start: 20131206
  4. ASPIRIN [Concomitant]
     Dates: start: 20131206

REACTIONS (3)
  - Gingival swelling [Recovering/Resolving]
  - Loose tooth [Not Recovered/Not Resolved]
  - Oral discomfort [Not Recovered/Not Resolved]
